FAERS Safety Report 9778289 (Version 1)
Quarter: 2013Q4

REPORT INFORMATION
  Report Type: Spontaneous
  Country: US (occurrence: US)
  Receive Date: 20131223
  Receipt Date: 20131223
  Transmission Date: 20140711
  Serious: Yes (Other)
  Sender: FDA-Public Use
  Company Number: US-ASTRAZENECA-2013SE91414

PATIENT
  Sex: Female

DRUGS (1)
  1. NEXIUM [Suspect]
     Indication: GASTROOESOPHAGEAL REFLUX DISEASE
     Route: 048
     Dates: start: 200512

REACTIONS (5)
  - Nervous system disorder [Not Recovered/Not Resolved]
  - Acute hepatic failure [Not Recovered/Not Resolved]
  - Malaise [Unknown]
  - Diarrhoea [Unknown]
  - Headache [Unknown]
